FAERS Safety Report 4565504-X (Version None)
Quarter: 2005Q1

REPORT INFORMATION
  Report Type: 
  Country: None (occurrence: None)
  Receive Date: 20050131
  Receipt Date: 20050127
  Transmission Date: 20050727
  Serious: Yes (Other)
  Sender: FDA-Public Use
  Company Number: US-GLAXOSMITHKLINE-A0542655A

PATIENT
  Age: 15 Year
  Sex: Male

DRUGS (5)
  1. ADVAIR DISKUS 100/50 [Suspect]
     Indication: DRUG USE FOR UNKNOWN INDICATION
     Route: 055
  2. DEPAKOTE [Concomitant]
  3. METADATE CD [Concomitant]
  4. COGENTIN [Concomitant]
  5. ZYPREXA [Concomitant]

REACTIONS (2)
  - AGITATION [None]
  - PSYCHOTIC DISORDER [None]
